FAERS Safety Report 9165068 (Version 2)
Quarter: 2013Q1

REPORT INFORMATION
  Report Type: Spontaneous
  Country: GB (occurrence: None)
  Receive Date: 20130227
  Receipt Date: 20130307
  Transmission Date: 20140127
  Serious: Yes (Hospitalization, Other)
  Sender: FDA-Public Use
  Company Number: AUR-APL-2013-01612

PATIENT
  Age: 70 Year
  Sex: Male

DRUGS (1)
  1. SIMVASTATIN (SIMVASTATIN) [Suspect]
     Indication: HYPERLIPIDAEMIA

REACTIONS (5)
  - Volvulus [None]
  - Asthenia [None]
  - Intestinal dilatation [None]
  - Gastrointestinal motility disorder [None]
  - Abdominal discomfort [None]
